FAERS Safety Report 9852276 (Version 1)
Quarter: 2014Q1

REPORT INFORMATION
  Report Type: Spontaneous
  Country: US (occurrence: None)
  Receive Date: 20140127
  Receipt Date: 20140127
  Transmission Date: 20141002
  Serious: Yes (Hospitalization, Other)
  Sender: FDA-Public Use
  Company Number: IMP_06947_2014

PATIENT
  Age: 67 Year
  Sex: Female

DRUGS (6)
  1. METFORMIN [Suspect]
     Indication: TYPE 2 DIABETES MELLITUS
     Dosage: (DF ORAL)
  2. LISINOPRIL [Concomitant]
  3. ASPIRIN [Concomitant]
  4. METOPROLOL [Concomitant]
  5. CLOPIDOGREL [Concomitant]
  6. ACETAMINOPHEN W/HYDROCODONE [Concomitant]

REACTIONS (8)
  - Blindness [None]
  - Heart rate decreased [None]
  - Blood pressure decreased [None]
  - Respiratory rate increased [None]
  - Lactic acidosis [None]
  - Alcohol poisoning [None]
  - Haemodialysis [None]
  - Blood creatinine increased [None]
